FAERS Safety Report 10085687 (Version 1)
Quarter: 2014Q2

REPORT INFORMATION
  Report Type: Report from Study
  Country: US (occurrence: US)
  Receive Date: 20140418
  Receipt Date: 20140418
  Transmission Date: 20141212
  Serious: Yes (Hospitalization)
  Sender: FDA-Public Use
  Company Number: US-ROCHE-1374398

PATIENT
  Sex: Female
  Weight: 74 kg

DRUGS (12)
  1. CELLCEPT [Suspect]
     Indication: PRODUCT USED FOR UNKNOWN INDICATION
     Route: 065
  2. NASACORT [Concomitant]
  3. VERAMYST [Concomitant]
  4. NASONEX [Concomitant]
  5. ZYRTEC [Concomitant]
  6. CITALOPRAM [Concomitant]
  7. HYDROCHLOROTHIAZIDE [Concomitant]
  8. TRIAMCINOLONE [Concomitant]
  9. AQUAPHOR (UNITED STATES) [Concomitant]
  10. QUERCETIN [Concomitant]
  11. BIOTIN [Concomitant]
  12. PRILOSEC [Concomitant]

REACTIONS (3)
  - Anaphylactic reaction [Unknown]
  - Angioedema [Unknown]
  - Angioedema [Unknown]
